FAERS Safety Report 13039776 (Version 1)
Quarter: 2016Q4

REPORT INFORMATION
  Report Type: Other
  Country: US (occurrence: US)
  Receive Date: 20161219
  Receipt Date: 20161219
  Transmission Date: 20170207
  Serious: Yes (Other)
  Sender: FDA-Public Use
  Company Number: US-TOLMAR INC.-1060974

PATIENT
  Age: 16 Year
  Sex: Male

DRUGS (2)
  1. LORAZEPAM. [Concomitant]
     Active Substance: LORAZEPAM
  2. LEVETIRACETAM ORAL SOLUTION, 100MG/ML [Suspect]
     Active Substance: LEVETIRACETAM
     Indication: GENERALISED TONIC-CLONIC SEIZURE
     Route: 048

REACTIONS (4)
  - Back pain [Recovered/Resolved]
  - Acute kidney injury [Unknown]
  - Rhabdomyolysis [Unknown]
  - Pain in extremity [Unknown]
